FAERS Safety Report 25014877 (Version 1)
Quarter: 2025Q1

REPORT INFORMATION
  Report Type: Spontaneous
  Country: ES (occurrence: ES)
  Receive Date: 20250226
  Receipt Date: 20250226
  Transmission Date: 20250409
  Serious: Yes (Other)
  Sender: ORGANON
  Company Number: ES-ORGANON-O2502ESP001896

PATIENT
  Sex: Female

DRUGS (2)
  1. ETONOGESTREL [Interacting]
     Active Substance: ETONOGESTREL
     Indication: Contraception
     Route: 059
  2. RIFAMPIN [Interacting]
     Active Substance: RIFAMPIN
     Indication: Tuberculosis

REACTIONS (6)
  - Pregnancy with implant contraceptive [Unknown]
  - Unintended pregnancy [Unknown]
  - Tuberculin test positive [Unknown]
  - Drug interaction [Unknown]
  - Device breakage [Recovered/Resolved]
  - Drug ineffective [Unknown]
